FAERS Safety Report 10179872 (Version 1)
Quarter: 2014Q2

REPORT INFORMATION
  Report Type: Spontaneous
  Country: US (occurrence: None)
  Receive Date: 20140516
  Receipt Date: 20140516
  Transmission Date: 20141212
  Serious: Yes (Hospitalization)
  Sender: FDA-Public Use
  Company Number: None

PATIENT
  Age: 64 Year
  Sex: Female
  Weight: 90.72 kg

DRUGS (14)
  1. HUMIRA [Suspect]
     Indication: RHEUMATOID ARTHRITIS
     Dosage: 10 MG INJECTION ONCE VERY OTHER WEEK BEDTIME INJECTION
     Dates: start: 20100415, end: 20140209
  2. METHOTREXATE 60 ML [Suspect]
     Dates: start: 20010104
  3. OXYCONTIN [Concomitant]
  4. NORCO [Concomitant]
  5. AMIODIPINE BESYLATE 2.5 MG, GREENSTONE BRAND [Concomitant]
  6. CITALOPRAM [Concomitant]
  7. HYDROCHLOROTHIAZIDE [Concomitant]
  8. LISINOPRIL [Concomitant]
  9. NEXIUM [Concomitant]
  10. SIMVASTATIN [Concomitant]
  11. IRON [Concomitant]
  12. CALCIUM 600+VIT D [Concomitant]
  13. FIBER THERAPY [Concomitant]
  14. FOLIC ACID [Concomitant]

REACTIONS (6)
  - Cervical vertebral fracture [None]
  - Compression fracture [None]
  - Fall [None]
  - Unresponsive to stimuli [None]
  - Blood pressure [None]
  - Posterior reversible encephalopathy syndrome [None]
